FAERS Safety Report 9839225 (Version 2)
Quarter: 2014Q1

REPORT INFORMATION
  Report Type: Spontaneous
  Country: CO (occurrence: None)
  Receive Date: 20140116
  Receipt Date: 20140124
  Transmission Date: 20141002
  Serious: Yes (Death, Other)
  Sender: FDA-Public Use
  Company Number: DSU-2014-00015

PATIENT
  Age: 81 Year
  Sex: Female

DRUGS (4)
  1. OLMETEC [Suspect]
     Indication: HYPERTENSION
     Dosage: 40 MG (40 MG, QD), PER ORAL
     Route: 048
     Dates: start: 2011
  2. LIPITOR [Suspect]
     Indication: HYPERTENSION
     Dosage: 40 MG (40 MG, QD), PER ORAL
     Route: 048
     Dates: start: 201110
  3. LIPITOR [Suspect]
     Indication: CARDIAC DISORDER
     Dosage: 40 MG (40 MG, QD), PER ORAL
     Route: 048
     Dates: start: 201110
  4. PRESTOR [Concomitant]

REACTIONS (3)
  - Cardiac arrest [None]
  - Intestinal cyst [None]
  - Colon neoplasm [None]
